FAERS Safety Report 8910657 (Version 1)
Quarter: 2012Q4

REPORT INFORMATION
  Report Type: Spontaneous
  Country: US (occurrence: None)
  Receive Date: 20121116
  Receipt Date: 20121116
  Transmission Date: 20130627
  Serious: Yes (Disabling)
  Sender: FDA-Public Use
  Company Number: None

PATIENT
  Age: 29 Year
  Sex: Male
  Weight: 89.81 kg

DRUGS (1)
  1. STEROID [Suspect]
     Route: 039

REACTIONS (1)
  - No adverse event [None]
